FAERS Safety Report 10348253 (Version 1)
Quarter: 2014Q3

REPORT INFORMATION
  Report Type: Spontaneous
  Country: IT (occurrence: IT)
  Receive Date: 20140729
  Receipt Date: 20140729
  Transmission Date: 20150326
  Serious: Yes (Hospitalization)
  Sender: FDA-Public Use
  Company Number: IT-TEVA-495946ISR

PATIENT
  Age: 48 Year
  Sex: Female

DRUGS (3)
  1. DIFMETRE - COMPRESSE RIVESTITE - ABBOTT S.R.L. [Suspect]
     Active Substance: CAFFEINE\INDOMETHACIN\PROCHLORPERAZINE MALEATE
     Indication: INTENTIONAL SELF-INJURY
     Route: 048
     Dates: start: 20140405, end: 20140405
  2. PROTIADEN - TEOFARMA S.R.L. [Suspect]
     Active Substance: DOTHIEPIN HYDROCHLORIDE
     Indication: INTENTIONAL SELF-INJURY
     Route: 048
     Dates: start: 20140405, end: 20140405
  3. ALPRAZOLAM. [Suspect]
     Active Substance: ALPRAZOLAM
     Indication: INTENTIONAL SELF-INJURY
     Route: 048
     Dates: start: 20140405, end: 20140405

REACTIONS (3)
  - Depressed level of consciousness [Recovering/Resolving]
  - Drug abuse [Recovering/Resolving]
  - Refusal of treatment by patient [None]

NARRATIVE: CASE EVENT DATE: 20140405
